FAERS Safety Report 8042748-6 (Version None)
Quarter: 2012Q1

REPORT INFORMATION
  Report Type: 
  Country: None (occurrence: None)
  Receive Date: 20120112
  Receipt Date: 20120109
  Transmission Date: 20120608
  Serious: Yes (Death)
  Sender: FDA-Public Use
  Company Number: FR-ASTRAZENECA-2011SE69962

PATIENT
  Age: 513 Month
  Sex: Female

DRUGS (6)
  1. QUETIAPINE FUMARATE [Suspect]
     Route: 048
     Dates: start: 20111020, end: 20111020
  2. QUETIAPINE FUMARATE [Suspect]
     Route: 048
     Dates: start: 20111021, end: 20111021
  3. QUETIAPINE FUMARATE [Suspect]
     Indication: BIPOLAR I DISORDER
     Route: 048
     Dates: start: 20111019, end: 20111019
  4. LITHIUM CARBONATE [Suspect]
     Indication: BIPOLAR DISORDER
     Dosage: 250 MG TWO TABLETS IN THE MORNING AND THREE TABLETS IN THE EVENING
     Dates: start: 20111007, end: 20111111
  5. OXAZEPAM [Concomitant]
     Dates: start: 20111107
  6. QUETIAPINE FUMARATE [Suspect]
     Route: 048
     Dates: start: 20111023, end: 20111111

REACTIONS (3)
  - EYELID OEDEMA [None]
  - OEDEMA PERIPHERAL [None]
  - COMPLETED SUICIDE [None]
